FAERS Safety Report 8390391-1 (Version None)
Quarter: 2012Q2

REPORT INFORMATION
  Report Type: 
  Country: None (occurrence: None)
  Receive Date: 20120529
  Receipt Date: 20120516
  Transmission Date: 20120825
  Serious: Yes (Other)
  Sender: FDA-Public Use
  Company Number: CA-JNJFOC-20120514352

PATIENT
  Sex: Female
  Weight: 64 kg

DRUGS (4)
  1. REMICADE [Suspect]
     Indication: CROHN'S DISEASE
     Route: 042
     Dates: start: 20110301
  2. DEPO-PROVERA [Concomitant]
     Route: 065
     Dates: start: 20110101
  3. ATIVAN [Concomitant]
     Route: 048
     Dates: start: 20120508
  4. KEPPRA [Concomitant]
     Indication: EPILEPSY
     Route: 065
     Dates: start: 20120508

REACTIONS (1)
  - EPILEPSY [None]
